FAERS Safety Report 17251330 (Version 1)
Quarter: 2020Q1

REPORT INFORMATION
  Report Type: Spontaneous
  Country: US (occurrence: US)
  Receive Date: 20200109
  Receipt Date: 20200109
  Transmission Date: 20200409
  Serious: Yes (Hospitalization, Other)
  Sender: FDA-Public Use
  Company Number: US-ROCHE-2513033

PATIENT
  Sex: Female
  Weight: 54.5 kg

DRUGS (5)
  1. NIVOLUMAB [Concomitant]
     Active Substance: NIVOLUMAB
     Indication: LUNG NEOPLASM MALIGNANT
     Dosage: RECEIVED 12 CYCLES FOR MAINTENANCE
     Route: 042
     Dates: start: 201703, end: 201708
  2. ALECENSA [Suspect]
     Active Substance: ALECTINIB HYDROCHLORIDE
     Indication: LUNG CANCER METASTATIC
     Dosage: ONGOING: NO
     Route: 048
     Dates: start: 20180319, end: 2018
  3. AVASTIN [Suspect]
     Active Substance: BEVACIZUMAB
     Route: 042
     Dates: start: 20190605, end: 20191211
  4. AVASTIN [Suspect]
     Active Substance: BEVACIZUMAB
     Indication: LUNG NEOPLASM MALIGNANT
     Route: 065
     Dates: start: 201312, end: 201403
  5. AVASTIN [Suspect]
     Active Substance: BEVACIZUMAB
     Dosage: ONGOING: NO
     Route: 065
     Dates: start: 201403, end: 201701

REACTIONS (14)
  - Disease progression [Unknown]
  - Memory impairment [Not Recovered/Not Resolved]
  - Necrosis [Unknown]
  - Drug ineffective [Unknown]
  - Head injury [Unknown]
  - Neoplasm progression [Not Recovered/Not Resolved]
  - Communication disorder [Not Recovered/Not Resolved]
  - Brain oedema [Not Recovered/Not Resolved]
  - Mental impairment [Not Recovered/Not Resolved]
  - Metastases to central nervous system [Unknown]
  - Fall [Unknown]
  - Off label use [Unknown]
  - Weight fluctuation [Unknown]
  - Intentional product use issue [Unknown]

NARRATIVE: CASE EVENT DATE: 2018
